FAERS Safety Report 13367587 (Version 2)
Quarter: 2017Q1

REPORT INFORMATION
  Report Type: Spontaneous
  Country: IT (occurrence: IT)
  Receive Date: 20170324
  Receipt Date: 20170330
  Transmission Date: 20170429
  Serious: Yes (Other)
  Sender: FDA-Public Use
  Company Number: IT-ROCHE-1910200

PATIENT
  Age: 47 Year
  Sex: Female

DRUGS (2)
  1. SERENASE (ITALY) [Suspect]
     Active Substance: HALOPERIDOL
     Indication: PRODUCT USED FOR UNKNOWN INDICATION
     Dosage: 2 MG/ML ORAL DROPS, SOLUTION 1 X 15 ML BOTTLE
     Route: 048
     Dates: start: 20170308, end: 20170308
  2. RIVOTRIL [Suspect]
     Active Substance: CLONAZEPAM
     Indication: PRODUCT USED FOR UNKNOWN INDICATION
     Dosage: 2.5 MG/ML ORAL DROPS, SOLUTION 10 ML BOTTLE
     Route: 048
     Dates: start: 20170308, end: 20170308

REACTIONS (3)
  - Sopor [Recovered/Resolved]
  - Drug abuse [Unknown]
  - Slow response to stimuli [Recovered/Resolved]

NARRATIVE: CASE EVENT DATE: 20170308
